FAERS Safety Report 9029311 (Version 1)
Quarter: 2013Q1

REPORT INFORMATION
  Report Type: Spontaneous
  Country: US (occurrence: US)
  Receive Date: 20130124
  Receipt Date: 20130124
  Transmission Date: 20140127
  Serious: No
  Sender: FDA-Public Use
  Company Number: US-TARO-2012P1045045

PATIENT
  Age: 46 Year
  Sex: Female

DRUGS (2)
  1. DESOXIMETASONE [Suspect]
     Dates: start: 201103
  2. DESOXIMETASONE [Suspect]
     Dates: start: 201103

REACTIONS (1)
  - Condition aggravated [Not Recovered/Not Resolved]
